FAERS Safety Report 8167713-X (Version None)
Quarter: 2012Q1

REPORT INFORMATION
  Report Type: 
  Country: None (occurrence: None)
  Receive Date: 20120227
  Receipt Date: 20120220
  Transmission Date: 20120608
  Serious: Yes (Hospitalization, Other)
  Sender: FDA-Public Use
  Company Number: US-AMGEN-USASP2011069309

PATIENT
  Age: 67 Year
  Sex: Female
  Weight: 78.458 kg

DRUGS (6)
  1. HYDROCHLOROTHIAZIDE [Suspect]
     Dosage: UNK
     Dates: start: 20111215
  2. LISINOPRIL [Concomitant]
  3. FOSAMAX [Concomitant]
     Dosage: UNK
     Dates: start: 20100101
  4. PROLIA [Suspect]
     Indication: BREAST CANCER
     Dosage: UNK UNK, Q6MO
     Dates: start: 20110801
  5. ARIMIDEX [Concomitant]
  6. NAPROXEN [Concomitant]
     Dosage: UNK
     Dates: start: 20111128, end: 20111210

REACTIONS (2)
  - HYPERPARATHYROIDISM [None]
  - HYPERCALCAEMIA [None]
